FAERS Safety Report 17687201 (Version 2)
Quarter: 2020Q2

REPORT INFORMATION
  Report Type: Report from Study
  Country: GB (occurrence: GB)
  Receive Date: 20200421
  Receipt Date: 20200513
  Transmission Date: 20200714
  Serious: Yes (Other)
  Sender: FDA-Public Use
  Company Number: GB-SAMSUNG BIOEPIS-SB-2020-11662

PATIENT
  Age: 59 Year
  Sex: Female

DRUGS (8)
  1. CODEINE PHOSPHATE [Concomitant]
     Active Substance: CODEINE PHOSPHATE
     Indication: ABDOMINAL PAIN
     Route: 065
  2. BENEPALI [Suspect]
     Active Substance: ETANERCEPT
     Indication: RHEUMATOID ARTHRITIS
     Route: 058
     Dates: start: 20190425, end: 20190923
  3. BENEPALI [Suspect]
     Active Substance: ETANERCEPT
     Route: 058
     Dates: start: 20191101, end: 202001
  4. LISINOPRIL. [Concomitant]
     Active Substance: LISINOPRIL
     Indication: HYPERTENSION
     Route: 065
  5. CHLORPHENIRAMINE. [Concomitant]
     Active Substance: CHLORPHENIRAMINE
     Indication: HYPERSENSITIVITY
     Dosage: UNKNOWN
     Route: 065
  6. BENEPALI [Suspect]
     Active Substance: ETANERCEPT
     Route: 058
     Dates: start: 20200408
  7. CHLORPHENIRAMINE. [Concomitant]
     Active Substance: CHLORPHENIRAMINE
     Indication: PRODUCT USED FOR UNKNOWN INDICATION
     Route: 065
  8. BENEPALI [Suspect]
     Active Substance: ETANERCEPT
     Route: 058
     Dates: end: 20200220

REACTIONS (8)
  - Tooth extraction [Recovered/Resolved]
  - Vertigo [Unknown]
  - Oral infection [Recovered/Resolved]
  - Oropharyngeal pain [Recovering/Resolving]
  - Influenza [Recovered/Resolved]
  - Nasopharyngitis [Not Recovered/Not Resolved]
  - Deafness [Not Recovered/Not Resolved]
  - Burning sensation [Unknown]

NARRATIVE: CASE EVENT DATE: 201909
